FAERS Safety Report 8827587 (Version 2)
Quarter: 2012Q4

REPORT INFORMATION
  Report Type: 
  Country: CN (occurrence: CN)
  Receive Date: 20121008
  Receipt Date: 20121025
  Transmission Date: 20130627
  Serious: Yes (Hospitalization)
  Sender: FDA-Public Use
  Company Number: CN-JNJFOC-20121001755

PATIENT
  Sex: Female

DRUGS (7)
  1. PARACETAMOL [Suspect]
     Route: 048
  2. PARACETAMOL [Suspect]
     Indication: UPPER RESPIRATORY TRACT INFECTION
     Route: 048
     Dates: start: 20091228, end: 20091231
  3. LEVOFLOXACIN [Suspect]
     Indication: PRODUCT USED FOR UNKNOWN INDICATION
     Route: 042
  4. AN UNKNOWN MEDICATION [Concomitant]
     Route: 048
     Dates: start: 20091228
  5. AMOXICILLIN [Concomitant]
     Route: 048
     Dates: start: 20091228
  6. AN UNKNOWN MEDICATION [Concomitant]
     Route: 048
  7. CEFACLOR [Concomitant]
     Route: 048

REACTIONS (3)
  - Hepatocellular injury [Recovering/Resolving]
  - Renal impairment [Recovering/Resolving]
  - Rash [Recovering/Resolving]
